FAERS Safety Report 9155733 (Version 2)
Quarter: 2013Q1

REPORT INFORMATION
  Report Type: Report from Study
  Country: US (occurrence: US)
  Receive Date: 20130311
  Receipt Date: 20130325
  Transmission Date: 20140127
  Serious: Yes (Other)
  Sender: FDA-Public Use
  Company Number: US-ABBOTT-13P-163-1058008-00

PATIENT
  Age: 57 Year
  Sex: Female

DRUGS (4)
  1. HUMIRA [Suspect]
     Indication: CROHN^S DISEASE
     Dates: start: 201208, end: 20130213
  2. VITAMIN D [Concomitant]
     Indication: PRODUCT USED FOR UNKNOWN INDICATION
  3. UNKNOWN BLOOD PRESSURE MEDICATION [Concomitant]
     Indication: PRODUCT USED FOR UNKNOWN INDICATION
  4. LOSARTAN [Concomitant]
     Indication: HYPERTENSION

REACTIONS (7)
  - Cyst [Recovering/Resolving]
  - Staphylococcal infection [Recovering/Resolving]
  - Hypersensitivity [Recovering/Resolving]
  - Oral herpes [Recovering/Resolving]
  - Hordeolum [Recovering/Resolving]
  - Skin discolouration [Recovered/Resolved]
  - Furuncle [Recovering/Resolving]
